FAERS Safety Report 12472112 (Version 1)
Quarter: 2016Q2

REPORT INFORMATION
  Report Type: Spontaneous
  Country: US (occurrence: US)
  Receive Date: 20160616
  Receipt Date: 20160616
  Transmission Date: 20160815
  Serious: Yes (Other)
  Sender: FDA-Public Use
  Company Number: US-WEST-WARD PHARMACEUTICALS CORP.-US-H14001-16-01017

PATIENT
  Age: 25 Year
  Sex: Male

DRUGS (1)
  1. LOPERAMIDE [Suspect]
     Active Substance: LOPERAMIDE
     Indication: PRODUCT USED FOR UNKNOWN INDICATION
     Dosage: DELIBERATELY INGESTED 300 MG OF LOPERAMIDE
     Route: 048

REACTIONS (4)
  - Cardiotoxicity [Recovered/Resolved]
  - Arrhythmia [Recovered/Resolved]
  - Mental status changes [Unknown]
  - Intentional overdose [Recovered/Resolved]
